FAERS Safety Report 25674072 (Version 1)
Quarter: 2025Q3

REPORT INFORMATION
  Report Type: Spontaneous
  Country: US (occurrence: US)
  Receive Date: 20250813
  Receipt Date: 20250813
  Transmission Date: 20251021
  Serious: No
  Sender: ELI LILLY AND COMPANY
  Company Number: US-ELI_LILLY_AND_COMPANY-US202508007780

PATIENT
  Age: 69 Year
  Sex: Female

DRUGS (2)
  1. LYUMJEV JUNIOR KWIKPEN [Suspect]
     Active Substance: INSULIN LISPRO
     Indication: Blood glucose increased
     Route: 065
     Dates: start: 2024, end: 202507
  2. LYUMJEV JUNIOR KWIKPEN [Suspect]
     Active Substance: INSULIN LISPRO
     Route: 065
     Dates: start: 20250806

REACTIONS (4)
  - Gait disturbance [Unknown]
  - Arthralgia [Unknown]
  - Myalgia [Unknown]
  - Injection site irritation [Unknown]

NARRATIVE: CASE EVENT DATE: 20250701
